FAERS Safety Report 16343133 (Version 2)
Quarter: 2019Q2

REPORT INFORMATION
  Report Type: Spontaneous
  Country: BR (occurrence: BR)
  Receive Date: 20190522
  Receipt Date: 20190617
  Transmission Date: 20190711
  Serious: Yes (Other)
  Sender: FDA-Public Use
  Company Number: BR-ABBVIE-19P-020-2687413-00

PATIENT
  Age: 54 Year
  Sex: Male
  Weight: 86 kg

DRUGS (14)
  1. DEPAKENE [Suspect]
     Active Substance: VALPROIC ACID
     Dosage: DAILY DOSE: 1500 MILLIGRAM. INCREASED TO 2000 MG/DAY
     Route: 048
     Dates: start: 2001
  2. JARDIANCE [Concomitant]
     Active Substance: EMPAGLIFLOZIN
     Indication: DIABETES MELLITUS MANAGEMENT
     Dosage: DAILY DOSE: 1 TABLET IN THE MONORNING
     Route: 048
  3. URBANIL [Concomitant]
     Active Substance: CLOBAZAM
     Indication: SEIZURE
     Route: 048
     Dates: start: 2001
  4. ACETYLSALICYLIC ACID [Concomitant]
     Active Substance: ASPIRIN
     Indication: ANTICOAGULANT THERAPY
     Dosage: DAILY DOSE: ADMINISTERED AFTER LUNCH
     Route: 048
  5. ACETYLSALICYLIC ACID [Concomitant]
     Active Substance: ASPIRIN
     Indication: CARDIOVASCULAR EVENT PROPHYLAXIS
  6. DEPAKENE [Suspect]
     Active Substance: VALPROIC ACID
     Indication: PETIT MAL EPILEPSY
     Dosage: DAILY DOSE: 2500 MILLIGRAM 2 TABLETS AT 7AM, 1 TABLET AT 3PM, 2 TABLETS AT 11PM
     Route: 048
     Dates: end: 20190211
  7. METFORMIN HYDROCHLORIDE. [Concomitant]
     Active Substance: METFORMIN HYDROCHLORIDE
     Indication: DIABETES MELLITUS
     Route: 048
     Dates: start: 1999
  8. ATORVASTATIN CALCIUM. [Concomitant]
     Active Substance: ATORVASTATIN CALCIUM
     Indication: BLOOD CHOLESTEROL INCREASED
     Dosage: DAILY DOSE: 1 TABLET ADMINISTERED AFTER DINNER
     Route: 048
     Dates: start: 20190213
  9. NPH INSULIN [Concomitant]
     Active Substance: INSULIN BEEF
     Indication: DIABETES MELLITUS
     Dosage: DAILY DOSE: 30 IU IN THE MORNING; 16 IU AT LUNCH AND 18IU AT DINNER-10PM
     Route: 058
  10. INSULIN [Concomitant]
     Active Substance: INSULIN NOS
     Indication: DIABETES MELLITUS
     Dosage: DAILY DOSE: 6 IU IN THE MORNING, 6 IU AT LUNCH AND 4 IU BEFORE DINNER
  11. EPILENIL [Suspect]
     Active Substance: VALPROIC ACID
     Indication: PETIT MAL EPILEPSY
     Dosage: DAILY DOSE: 2500 MILLIGRAM; 2 TABLETS AT 7 AM, 1 TABLET AT 3 PM, 2 TABLETS AT 11PM
     Route: 048
     Dates: start: 20190211
  12. NEVRIX [Concomitant]
     Indication: MALAISE
     Dosage: DAILY DOSE: 1 TABLET ADMINISTERED IN THE MORNING
     Route: 048
     Dates: start: 20190206
  13. SERTRALINE HYDROCHLORIDE. [Concomitant]
     Active Substance: SERTRALINE HYDROCHLORIDE
     Indication: DEPRESSION
     Dosage: DAILY DOSE: 1 TABLET ADMINISTERED IN THE MORNING
     Route: 048
     Dates: start: 2018
  14. DEPAKENE [Suspect]
     Active Substance: VALPROIC ACID
     Dosage: DAILY DOSE: 2000 MILLIGRAM. INCREASED TO 2500 MG/DAY
     Route: 048

REACTIONS (14)
  - Impaired reasoning [Not Recovered/Not Resolved]
  - Back pain [Recovered/Resolved]
  - Abdominal pain upper [Not Recovered/Not Resolved]
  - Dyskinesia [Unknown]
  - Behaviour disorder [Unknown]
  - Pain in extremity [Recovered/Resolved]
  - Headache [Recovered/Resolved]
  - Speech disorder [Not Recovered/Not Resolved]
  - Seizure [Recovered/Resolved]
  - Renal pain [Recovered/Resolved]
  - Memory impairment [Not Recovered/Not Resolved]
  - Petit mal epilepsy [Recovering/Resolving]
  - Aphasia [Not Recovered/Not Resolved]
  - White blood cell disorder [Unknown]

NARRATIVE: CASE EVENT DATE: 201902
